FAERS Safety Report 19917568 (Version 1)
Quarter: 2021Q4

REPORT INFORMATION
  Report Type: Other
  Country: GB (occurrence: GB)
  Receive Date: 20211005
  Receipt Date: 20211005
  Transmission Date: 20220303
  Serious: Yes (Disabling, Other)
  Sender: FDA-Public Use
  Company Number: GB-MACLEODS PHARMA UK LTD-MAC2021032858

PATIENT

DRUGS (5)
  1. LEVOFLOXACIN [Suspect]
     Active Substance: LEVOFLOXACIN
     Indication: Respiratory tract infection
     Dosage: 750 MILLIGRAM, QD
     Route: 048
     Dates: start: 20210617, end: 20210717
  2. AMIKACIN [Concomitant]
     Active Substance: AMIKACIN
     Indication: Ill-defined disorder
     Dosage: UNK
     Route: 065
  3. AZITHROMYCIN ANHYDROUS [Concomitant]
     Active Substance: AZITHROMYCIN ANHYDROUS
     Indication: Ill-defined disorder
     Dosage: UNK
     Route: 065
  4. CLOFAZIMINE [Concomitant]
     Active Substance: CLOFAZIMINE
     Indication: Ill-defined disorder
     Dosage: UNK
     Route: 065
  5. RIFABUTIN [Concomitant]
     Active Substance: RIFABUTIN
     Indication: Ill-defined disorder
     Dosage: UNK
     Route: 065

REACTIONS (4)
  - Hallucination, visual [Unknown]
  - Hallucination [Recovered/Resolved]
  - Insomnia [Unknown]
  - Memory impairment [Unknown]
